FAERS Safety Report 18666458 (Version 1)
Quarter: 2020Q4

REPORT INFORMATION
  Report Type: Spontaneous
  Country: SE (occurrence: SE)
  Receive Date: 20201227
  Receipt Date: 20201227
  Transmission Date: 20210114
  Serious: Yes (Hospitalization, Congenital Anomaly)
  Sender: FDA-Public Use
  Company Number: SE-TEVA-2020-SE-1861245

PATIENT
  Sex: Male

DRUGS (7)
  1. TRANDATE [Concomitant]
     Active Substance: LABETALOL HYDROCHLORIDE
     Route: 064
     Dates: start: 20200720
  2. ONDANSETRON [Concomitant]
     Active Substance: ONDANSETRON
     Route: 064
     Dates: start: 20200717
  3. TROMBYL [Concomitant]
     Active Substance: ASPIRIN
     Dates: start: 20200820
  4. XANOR [Concomitant]
     Active Substance: ALPRAZOLAM
     Route: 064
     Dates: start: 20201127
  5. VENLAFAXINE [Suspect]
     Active Substance: VENLAFAXINE HYDROCHLORIDE
     Dosage: 300 MG DAILY THROUGHOUT PREGNANCY
     Route: 064
  6. OMEPRAZOLE. [Concomitant]
     Active Substance: OMEPRAZOLE
     Route: 064
     Dates: start: 20200925
  7. LEVAXIN [Concomitant]
     Active Substance: LEVOTHYROXINE SODIUM
     Route: 064
     Dates: start: 20191014

REACTIONS (2)
  - Foetal exposure during pregnancy [Recovered/Resolved]
  - Newborn persistent pulmonary hypertension [Recovered/Resolved]

NARRATIVE: CASE EVENT DATE: 202012
